APPROVED DRUG PRODUCT: AMINOSYN II 3.5%
Active Ingredient: AMINO ACIDS
Strength: 3.5% (3.5GM/100ML)
Dosage Form/Route: INJECTABLE;INJECTION
Application: N019438 | Product #001
Applicant: ICU MEDICAL INC
Approved: Apr 3, 1986 | RLD: No | RS: No | Type: DISCN